FAERS Safety Report 22055953 (Version 1)
Quarter: 2023Q1

REPORT INFORMATION
  Report Type: Spontaneous
  Country: US (occurrence: US)
  Receive Date: 20230302
  Receipt Date: 20230302
  Transmission Date: 20230418
  Serious: No
  Sender: FDA-Public Use
  Company Number: US-ANIPHARMA-2022-US-029522

PATIENT
  Age: 89 Year
  Sex: Male
  Weight: 88.45 kg

DRUGS (1)
  1. CASODEX [Suspect]
     Active Substance: BICALUTAMIDE
     Indication: Prostate cancer
     Dosage: 1 TABLET DAILY
     Route: 048
     Dates: start: 20221015, end: 20230120

REACTIONS (4)
  - Muscular weakness [Not Recovered/Not Resolved]
  - Urinary incontinence [Not Recovered/Not Resolved]
  - Product administration interrupted [Recovered/Resolved]
  - Intentional product misuse [Recovered/Resolved]
